FAERS Safety Report 4611392-2 (Version None)
Quarter: 2005Q1

REPORT INFORMATION
  Report Type: 
  Country: None (occurrence: None)
  Receive Date: 20050317
  Receipt Date: 20050310
  Transmission Date: 20050727
  Serious: Yes (Hospitalization, Other)
  Sender: FDA-Public Use
  Company Number: PHEH2005US03070

PATIENT
  Age: 73 Year
  Sex: Female

DRUGS (5)
  1. GLEEVEC [Suspect]
     Indication: CHRONIC MYELOID LEUKAEMIA
     Dosage: 300 MG, BID
     Route: 048
     Dates: start: 20040901
  2. GLEEVEC [Suspect]
     Dosage: 200 MG, BID
     Route: 048
     Dates: start: 20021201, end: 20040901
  3. ZOLOFT [Concomitant]
     Route: 048
  4. ZOCOR [Concomitant]
     Route: 048
  5. SYNTHROID [Concomitant]

REACTIONS (7)
  - BLOOD PRESSURE DECREASED [None]
  - CEREBROVASCULAR ACCIDENT [None]
  - DEHYDRATION [None]
  - DRUG INTERACTION [None]
  - HYPERTENSION [None]
  - HYPOAESTHESIA [None]
  - LABILE HYPERTENSION [None]
